FAERS Safety Report 11878214 (Version 1)
Quarter: 2015Q4

REPORT INFORMATION
  Report Type: Spontaneous
  Country: CN (occurrence: CN)
  Receive Date: 20151230
  Receipt Date: 20151230
  Transmission Date: 20160305
  Serious: Yes (Hospitalization, Other)
  Sender: FDA-Public Use
  Company Number: PHHY2015CN170182

PATIENT
  Age: 30 Year
  Sex: Female

DRUGS (3)
  1. HUMAN MENOPAUSAL GONADOTROPHIN [Suspect]
     Active Substance: GONADOTROPHIN, CHORIONIC
     Indication: OVULATION INDUCTION
     Dosage: UNK
     Route: 065
  2. HUMAN CHORIONIC GONADOTROPIN [Suspect]
     Active Substance: GONADOTROPHIN, CHORIONIC
     Indication: OVULATION INDUCTION
     Dosage: UNK
     Route: 065
  3. LETROZOLE. [Suspect]
     Active Substance: LETROZOLE
     Indication: OVULATION INDUCTION
     Dosage: UNK
     Route: 065

REACTIONS (17)
  - Abdominal distension [Unknown]
  - Cerebral thrombosis [Unknown]
  - Multiple pregnancy [None]
  - Tachycardia [Unknown]
  - Maternal exposure before pregnancy [None]
  - Abortion induced [None]
  - Ovarian enlargement [Unknown]
  - Fibrin D dimer increased [None]
  - Tachypnoea [Unknown]
  - Oedema peripheral [Unknown]
  - Headache [Unknown]
  - Vision blurred [Unknown]
  - Hemianopia homonymous [Unknown]
  - Product use issue [Unknown]
  - Platelet count decreased [None]
  - Ovarian hyperstimulation syndrome [Recovering/Resolving]
  - Haemoconcentration [Unknown]
